FAERS Safety Report 5470460-6 (Version None)
Quarter: 2007Q3

REPORT INFORMATION
  Report Type: 
  Country: None (occurrence: None)
  Receive Date: 20070926
  Receipt Date: 20070926
  Transmission Date: 20080115
  Serious: Yes (Other)
  Sender: FDA-Public Use
  Company Number: None

PATIENT
  Age: 56 Year
  Sex: Female

DRUGS (1)
  1. METFORMIN HCL ER 500MG SUN PHARMACEUTICALS [Suspect]
     Indication: TYPE 2 DIABETES MELLITUS
     Dosage: 1000MG TWICE/DAY PO
     Route: 048
     Dates: start: 20070908, end: 20070912

REACTIONS (8)
  - FORMICATION [None]
  - GAIT DISTURBANCE [None]
  - HEADACHE [None]
  - MEMORY IMPAIRMENT [None]
  - NAUSEA [None]
  - PAIN [None]
  - PHARMACEUTICAL PRODUCT COMPLAINT [None]
  - THINKING ABNORMAL [None]
